FAERS Safety Report 16140554 (Version 1)
Quarter: 2019Q2

REPORT INFORMATION
  Report Type: Spontaneous
  Country: FR (occurrence: FR)
  Receive Date: 20190401
  Receipt Date: 20190401
  Transmission Date: 20190711
  Serious: Yes (Death, Hospitalization, Congenital Anomaly, Other)
  Sender: FDA-Public Use
  Company Number: FR-GLAXOSMITHKLINE-FR2019055448

PATIENT
  Sex: Female

DRUGS (1)
  1. LAMICTAL [Suspect]
     Active Substance: LAMOTRIGINE
     Indication: EPILEPSY
     Dosage: 150 MG, QD
     Route: 064
     Dates: end: 20151014

REACTIONS (3)
  - Foetal exposure during pregnancy [Unknown]
  - CHARGE syndrome [Fatal]
  - Chromosomal mutation [Fatal]

NARRATIVE: CASE EVENT DATE: 20141020
